FAERS Safety Report 16179556 (Version 1)
Quarter: 2019Q2

REPORT INFORMATION
  Report Type: Spontaneous
  Country: US (occurrence: US)
  Receive Date: 20190410
  Receipt Date: 20190410
  Transmission Date: 20190711
  Serious: No
  Sender: FDA-Public Use
  Company Number: US-ASTRAZENECA-2019SE41309

PATIENT
  Age: 15552 Day
  Sex: Female
  Weight: 60.3 kg

DRUGS (1)
  1. BYDUREON BCISE [Suspect]
     Active Substance: EXENATIDE
     Indication: GLUCOSE TOLERANCE IMPAIRED
     Route: 058
     Dates: start: 20190217

REACTIONS (3)
  - Wrong technique in device usage process [Unknown]
  - Injection site bruising [Unknown]
  - Device issue [Unknown]

NARRATIVE: CASE EVENT DATE: 20190303
